FAERS Safety Report 9795635 (Version 2)
Quarter: 2014Q1

REPORT INFORMATION
  Report Type: Spontaneous
  Country: US (occurrence: US)
  Receive Date: 20140103
  Receipt Date: 20140127
  Transmission Date: 20141002
  Serious: No
  Sender: FDA-Public Use
  Company Number: US-PFIZER INC-2013374571

PATIENT
  Age: 85 Year
  Sex: Female
  Weight: 77.1 kg

DRUGS (1)
  1. ADVIL [Suspect]
     Indication: PAIN
     Dosage: ONE TABLET, AS NEEDED
     Route: 048
     Dates: start: 201303, end: 20131229

REACTIONS (3)
  - Dry throat [Unknown]
  - Dry mouth [Unknown]
  - Dyspnoea [Unknown]
